FAERS Safety Report 7724546-3 (Version None)
Quarter: 2011Q3

REPORT INFORMATION
  Report Type: 
  Country: None (occurrence: None)
  Receive Date: 20110901
  Receipt Date: 20110829
  Transmission Date: 20111222
  Serious: Yes (Disabling)
  Sender: FDA-Public Use
  Company Number: NO-MERCK-1108NOR00014

PATIENT
  Age: 68 Year
  Sex: Male

DRUGS (4)
  1. HYZAAR [Suspect]
     Indication: HYPERTENSION
     Route: 048
     Dates: start: 20080101
  2. ZOCOR [Suspect]
     Indication: CARDIOVASCULAR EVENT PROPHYLAXIS
     Route: 048
     Dates: start: 20080101, end: 20110601
  3. DIPYRIDAMOLE [Suspect]
     Indication: CARDIOVASCULAR EVENT PROPHYLAXIS
     Route: 065
     Dates: start: 20080101
  4. ASPIRIN AND MAGNESIUM OXIDE [Concomitant]
     Indication: CARDIOVASCULAR EVENT PROPHYLAXIS
     Route: 048
     Dates: start: 20080101

REACTIONS (4)
  - BACK PAIN [None]
  - MYALGIA [None]
  - PERIPHERAL COLDNESS [None]
  - PARAESTHESIA [None]
